FAERS Safety Report 12313757 (Version 1)
Quarter: 2016Q2

REPORT INFORMATION
  Report Type: Spontaneous
  Country: US (occurrence: US)
  Receive Date: 20160428
  Receipt Date: 20160428
  Transmission Date: 20160815
  Serious: No
  Sender: FDA-Public Use
  Company Number: US-BAUSCH-BL-2015-019934

PATIENT
  Age: 68 Year
  Sex: Female

DRUGS (1)
  1. ZYCLARA [Suspect]
     Active Substance: IMIQUIMOD
     Indication: ACTINIC KERATOSIS
     Dosage: APPLIED ONCE DAILY ON THE FOREHEAD AT BEDTIME
     Route: 061
     Dates: start: 201506, end: 201507

REACTIONS (8)
  - Lymph node pain [Recovered/Resolved]
  - Lymphadenopathy [Recovered/Resolved]
  - Lacrimation increased [Recovered/Resolved]
  - Eye irritation [Recovered/Resolved]
  - Erythema [Recovered/Resolved]
  - Vision blurred [Recovered/Resolved]
  - Ocular hyperaemia [Recovered/Resolved]
  - Eye inflammation [Recovered/Resolved]

NARRATIVE: CASE EVENT DATE: 2015
